FAERS Safety Report 13325929 (Version 4)
Quarter: 2017Q3

REPORT INFORMATION
  Report Type: Spontaneous
  Country: CA (occurrence: CA)
  Receive Date: 20170310
  Receipt Date: 20170901
  Transmission Date: 20171127
  Serious: Yes (Hospitalization)
  Sender: FDA-Public Use
  Company Number: CA-ALLERGAN-1708947US

PATIENT
  Age: 45 Year
  Sex: Female

DRUGS (4)
  1. BOTOX COSMETIC [Suspect]
     Active Substance: ONABOTULINUMTOXINA
     Indication: SKIN WRINKLING
     Dosage: 4 UNITS, SINGLE
     Route: 030
     Dates: start: 20161021, end: 20161021
  2. BOTOX COSMETIC [Suspect]
     Active Substance: ONABOTULINUMTOXINA
     Indication: SKIN WRINKLING
     Dosage: 12 UNITS, SINGLE
     Route: 030
     Dates: start: 20161021, end: 20161021
  3. BOTOX COSMETIC [Suspect]
     Active Substance: ONABOTULINUMTOXINA
     Indication: SKIN WRINKLING
     Dosage: 6 UNITS, SINGLE
     Route: 030
     Dates: start: 20161021, end: 20161021
  4. BOTOX COSMETIC [Suspect]
     Active Substance: ONABOTULINUMTOXINA
     Dosage: 24 UNITS, SINGLE
     Route: 030
     Dates: start: 20161024, end: 20161024

REACTIONS (26)
  - Dyskinesia [Recovering/Resolving]
  - Emotional distress [Unknown]
  - Malaise [Unknown]
  - Restless legs syndrome [Recovered/Resolved]
  - Nervousness [Recovering/Resolving]
  - Palpitations [Unknown]
  - Muscle spasms [Not Recovered/Not Resolved]
  - Chest pain [Recovering/Resolving]
  - Asphyxia [Recovering/Resolving]
  - Discomfort [Unknown]
  - Cardiac failure [Unknown]
  - Weight decreased [Unknown]
  - Tremor [Recovering/Resolving]
  - Gastrointestinal disorder [Unknown]
  - Cardiac fibrillation [Recovering/Resolving]
  - Musculoskeletal stiffness [Unknown]
  - Headache [Recovering/Resolving]
  - Respiratory depression [Unknown]
  - Chest discomfort [Unknown]
  - Dizziness [Unknown]
  - Fatigue [Unknown]
  - Asthenopia [Unknown]
  - Nervous system disorder [Unknown]
  - Off label use [Unknown]
  - Asthenia [Unknown]
  - Hypersensitivity [Unknown]

NARRATIVE: CASE EVENT DATE: 20161021
